FAERS Safety Report 23603401 (Version 2)
Quarter: 2024Q2

REPORT INFORMATION
  Report Type: Spontaneous
  Country: US (occurrence: US)
  Receive Date: 20240307
  Receipt Date: 20240502
  Transmission Date: 20240716
  Serious: Yes (Hospitalization, Other)
  Sender: FDA-Public Use
  Company Number: US-NOVOPROD-1184159

PATIENT
  Age: 67 Year
  Sex: Female

DRUGS (1)
  1. OZEMPIC [Suspect]
     Active Substance: SEMAGLUTIDE
     Indication: Diabetes mellitus
     Dosage: 0.5 MG
     Route: 058

REACTIONS (3)
  - Dehydration [Recovered/Resolved]
  - Thyroid disorder [Recovered/Resolved]
  - Blood potassium abnormal [Recovered/Resolved]

NARRATIVE: CASE EVENT DATE: 20231126
